FAERS Safety Report 5961568-7 (Version None)
Quarter: 2008Q4

REPORT INFORMATION
  Report Type: 
  Country: None (occurrence: None)
  Receive Date: 20081121
  Receipt Date: 20081117
  Transmission Date: 20090506
  Serious: Yes (Other)
  Sender: FDA-Public Use
  Company Number: B0546151A

PATIENT
  Age: 51 Year
  Sex: Male

DRUGS (2)
  1. ARIXTRA [Suspect]
     Indication: DRUG USE FOR UNKNOWN INDICATION
     Dosage: 2.5MG PER DAY
     Route: 058
     Dates: start: 20080912, end: 20080918
  2. INNOHEP [Suspect]
     Indication: DRUG USE FOR UNKNOWN INDICATION
     Dosage: 4500IU PER DAY
     Route: 058
     Dates: start: 20080918, end: 20081004

REACTIONS (3)
  - DEEP VEIN THROMBOSIS [None]
  - DRUG INEFFECTIVE [None]
  - PAIN IN EXTREMITY [None]
